FAERS Safety Report 8134971-7 (Version None)
Quarter: 2012Q1

REPORT INFORMATION
  Report Type: 
  Country: None (occurrence: None)
  Receive Date: 20120214
  Receipt Date: 20120203
  Transmission Date: 20120608
  Serious: Yes (Other)
  Sender: FDA-Public Use
  Company Number: DE-PFIZER INC-2012034361

PATIENT
  Sex: Male

DRUGS (8)
  1. SIMVASTATIN [Concomitant]
     Dosage: UNK
  2. PANTOPRAZOLE [Concomitant]
     Dosage: UNK
  3. AMIODARONE HCL [Suspect]
     Indication: PRODUCT USED FOR UNKNOWN INDICATION
     Dosage: UNK
  4. ASPIRIN [Concomitant]
     Dosage: UNK
  5. TORASEMIDE [Concomitant]
     Dosage: UNK
  6. RAMIPRIL [Concomitant]
     Dosage: UNK
  7. AMLODIPINE [Concomitant]
     Dosage: UNK
  8. METOCLOPRAMIDE [Concomitant]
     Dosage: UNK

REACTIONS (3)
  - PNEUMONIA [None]
  - LUNG INFILTRATION [None]
  - PLEURAL EFFUSION [None]
